FAERS Safety Report 8206833-8 (Version None)
Quarter: 2012Q1

REPORT INFORMATION
  Report Type: 
  Country: None (occurrence: None)
  Receive Date: 20120312
  Receipt Date: 20120301
  Transmission Date: 20120608
  Serious: Yes (Hospitalization)
  Sender: FDA-Public Use
  Company Number: 2011000260

PATIENT
  Age: 74 Year
  Sex: Female

DRUGS (3)
  1. TARCEVA [Suspect]
     Indication: NON-SMALL CELL LUNG CANCER STAGE IV
     Dosage: 100 MG, UNKNOWN/D, ORAL
     Route: 048
     Dates: start: 20110116, end: 20110101
  2. STEROID (STEROID) [Suspect]
     Indication: ANGIOEDEMA
     Dates: start: 20110101, end: 20110101
  3. VASOTEC [Concomitant]

REACTIONS (6)
  - ANGIOEDEMA [None]
  - THROAT TIGHTNESS [None]
  - LEUKOCYTOSIS [None]
  - OROPHARYNGEAL PAIN [None]
  - LUNG INFILTRATION [None]
  - DRUG HYPERSENSITIVITY [None]
